FAERS Safety Report 15111823 (Version 1)
Quarter: 2018Q3

REPORT INFORMATION
  Report Type: Report from Study
  Country: US (occurrence: US)
  Receive Date: 20180705
  Receipt Date: 20180705
  Transmission Date: 20181010
  Serious: Yes (Other)
  Sender: FDA-Public Use
  Company Number: US-JNJFOC-20180701857

PATIENT
  Sex: Female

DRUGS (1)
  1. REMICADE [Suspect]
     Active Substance: INFLIXIMAB
     Indication: PRODUCT USED FOR UNKNOWN INDICATION
     Route: 042
     Dates: start: 2016, end: 2016

REACTIONS (4)
  - Pruritus [Unknown]
  - Infusion related reaction [Unknown]
  - Respiratory distress [Unknown]
  - Bone pain [Unknown]

NARRATIVE: CASE EVENT DATE: 2016
